FAERS Safety Report 23971927 (Version 1)
Quarter: 2024Q2

REPORT INFORMATION
  Report Type: Spontaneous
  Country: GB (occurrence: GB)
  Receive Date: 20240613
  Receipt Date: 20240613
  Transmission Date: 20240716
  Serious: Yes (Other)
  Sender: FDA-Public Use
  Company Number: GB-B.Braun Medical Inc.-2158094

PATIENT
  Age: 2 Month
  Sex: Female
  Weight: 6.5 kg

DRUGS (1)
  1. METRONIDAZOLE [Suspect]
     Active Substance: METRONIDAZOLE

REACTIONS (5)
  - Headache [Recovering/Resolving]
  - Product administered to patient of inappropriate age [Recovering/Resolving]
  - Off label use [Recovering/Resolving]
  - Paraesthesia [Recovering/Resolving]
  - Blepharospasm [Recovering/Resolving]
